FAERS Safety Report 9398494 (Version 2)
Quarter: 2013Q3

REPORT INFORMATION
  Report Type: Spontaneous
  Country: US (occurrence: US)
  Receive Date: 20130712
  Receipt Date: 20130812
  Transmission Date: 20140515
  Serious: No
  Sender: FDA-Public Use
  Company Number: US-009507513-1307USA000844

PATIENT
  Age: 30 Year
  Sex: Female

DRUGS (3)
  1. NEXPLANON [Suspect]
     Indication: CONTRACEPTION
     Dosage: 68 MG, UNK
     Route: 059
     Dates: start: 20130118, end: 20130502
  2. NEXPLANON [Suspect]
     Dosage: UNK
     Dates: start: 201207
  3. YAZ [Concomitant]
     Indication: CONTRACEPTION
     Dosage: UNK
     Dates: end: 20130401

REACTIONS (2)
  - Unintended pregnancy [Unknown]
  - Menorrhagia [Unknown]
